FAERS Safety Report 11969162 (Version 1)
Quarter: 2016Q1

REPORT INFORMATION
  Report Type: Spontaneous
  Country: US (occurrence: US)
  Receive Date: 20160128
  Receipt Date: 20160128
  Transmission Date: 20160526
  Serious: No
  Sender: FDA-Public Use
  Company Number: PHEH2015US011931

PATIENT
  Age: 85 Year
  Sex: Female

DRUGS (2)
  1. EXELON PATCH [Suspect]
     Active Substance: RIVASTIGMINE
     Indication: PRODUCT USED FOR UNKNOWN INDICATION
     Dosage: 4.6 MG, QD
     Route: 062
  2. GABAPENTIN. [Concomitant]
     Active Substance: GABAPENTIN
     Indication: PRODUCT USED FOR UNKNOWN INDICATION
     Route: 065

REACTIONS (12)
  - Malaise [Recovering/Resolving]
  - Drug ineffective [Unknown]
  - Drug administration error [Unknown]
  - Macular degeneration [Unknown]
  - Muscular weakness [Unknown]
  - Memory impairment [Unknown]
  - Diarrhoea [Unknown]
  - Gastritis [Unknown]
  - Eye disorder [Unknown]
  - Decreased appetite [Unknown]
  - Neuropathy peripheral [Unknown]
  - Depression [Unknown]

NARRATIVE: CASE EVENT DATE: 20150606
